FAERS Safety Report 7250912-9 (Version None)
Quarter: 2011Q1

REPORT INFORMATION
  Report Type: 
  Country: None (occurrence: None)
  Receive Date: 20110128
  Receipt Date: 20110119
  Transmission Date: 20110831
  Serious: Yes (Hospitalization)
  Sender: FDA-Public Use
  Company Number: A0908745A

PATIENT
  Sex: Male

DRUGS (1)
  1. PAXIL [Suspect]
     Route: 048

REACTIONS (9)
  - SOMNOLENCE [None]
  - EMOTIONAL DISORDER [None]
  - DISTURBANCE IN ATTENTION [None]
  - FEELING ABNORMAL [None]
  - WEIGHT INCREASED [None]
  - ALCOHOL ABUSE [None]
  - ROAD TRAFFIC ACCIDENT [None]
  - DEPRESSION [None]
  - SUICIDE ATTEMPT [None]
